FAERS Safety Report 5527989-1 (Version None)
Quarter: 2007Q4

REPORT INFORMATION
  Report Type: 
  Country: None (occurrence: None)
  Receive Date: 20071128
  Receipt Date: 20071120
  Transmission Date: 20080405
  Serious: Yes (Life-Threatening, Hospitalization, Disabling)
  Sender: FDA-Public Use
  Company Number: US-MERCK-0711USA04183

PATIENT
  Age: 62 Year
  Sex: Male

DRUGS (10)
  1. JANUVIA [Suspect]
     Indication: BLOOD GLUCOSE
     Route: 048
     Dates: start: 20071116, end: 20071119
  2. METFORMIN [Concomitant]
     Route: 065
  3. LANTUS [Concomitant]
     Route: 065
  4. LISINOPRIL [Concomitant]
     Route: 065
  5. ACTOS [Concomitant]
     Route: 065
  6. AMLODIPINE BESYLATE [Concomitant]
     Route: 065
  7. IRON (UNSPECIFIED) [Concomitant]
     Route: 065
  8. PROPRANOLOL HYDROCHLORIDE [Concomitant]
     Route: 065
  9. SIMVASTATIN [Concomitant]
     Route: 065
  10. GLIPIZIDE [Concomitant]
     Route: 065

REACTIONS (1)
  - HEPATIC ENCEPHALOPATHY [None]
